FAERS Safety Report 9705468 (Version 1)
Quarter: 2013Q4

REPORT INFORMATION
  Report Type: Spontaneous
  Country: PT (occurrence: PT)
  Receive Date: 20131122
  Receipt Date: 20131122
  Transmission Date: 20140711
  Serious: Yes (Other)
  Sender: FDA-Public Use
  Company Number: PT-BAUSCH-BL-2013-006236

PATIENT
  Age: 58 Year
  Sex: Female

DRUGS (1)
  1. PHYSIOGLAU 2% UNIDOSES COLIRIO DE LIBERTACAO PROLONGADA EM RECIPIENTES [Suspect]
     Indication: GLAUCOMA
     Route: 047
     Dates: start: 201101, end: 201307

REACTIONS (3)
  - Hypersensitivity [Recovered/Resolved]
  - Eye swelling [Recovered/Resolved]
  - Eye pruritus [Recovered/Resolved]
